FAERS Safety Report 4303473-8 (Version None)
Quarter: 2004Q1

REPORT INFORMATION
  Report Type: 
  Country: None (occurrence: None)
  Receive Date: 20040223
  Receipt Date: 20040209
  Transmission Date: 20041129
  Serious: Yes (Disabling, Other)
  Sender: FDA-Public Use
  Company Number: 2004008688

PATIENT
  Sex: Male
  Weight: 102.0593 kg

DRUGS (2)
  1. DILANTIN [Suspect]
     Indication: NERVOUSNESS
     Dosage: (TID), ORAL
     Route: 048
     Dates: end: 20040101
  2. PHENOBARBITAL TAB [Concomitant]

REACTIONS (10)
  - ASTHENIA [None]
  - GLAUCOMA [None]
  - GRAND MAL CONVULSION [None]
  - INFECTION [None]
  - INJURY [None]
  - NERVOUSNESS [None]
  - PETIT MAL EPILEPSY [None]
  - THERMAL BURN [None]
  - TOOTH EXTRACTION [None]
  - TREATMENT NONCOMPLIANCE [None]
